FAERS Safety Report 5196801-5 (Version None)
Quarter: 2006Q4

REPORT INFORMATION
  Report Type: 
  Country: None (occurrence: None)
  Receive Date: 20061227
  Receipt Date: 20061215
  Transmission Date: 20070319
  Serious: Yes (Other)
  Sender: FDA-Public Use
  Company Number: 2006153923

PATIENT
  Age: 56 Year
  Sex: Male

DRUGS (4)
  1. XANAX [Suspect]
  2. VERAPAMIL HYDROCHLORIDE CAPLET (VERAPAMIL HYROCHLORIDE) [Suspect]
     Dates: start: 20051201
  3. TEMAZEPAM [Suspect]
  4. DEPAKOTE [Suspect]

REACTIONS (1)
  - PRIAPISM [None]
